FAERS Safety Report 18296863 (Version 1)
Quarter: 2020Q3

REPORT INFORMATION
  Report Type: Spontaneous
  Country: US (occurrence: US)
  Receive Date: 20200922
  Receipt Date: 20200922
  Transmission Date: 20201103
  Serious: No
  Sender: FDA-Public Use
  Company Number: US-TEVA-2020-US-1829292

PATIENT
  Age: 68 Year
  Sex: Female
  Weight: 103.42 kg

DRUGS (5)
  1. LOSARTAN. [Concomitant]
     Active Substance: LOSARTAN
     Route: 065
  2. NUVIGIL [Suspect]
     Active Substance: ARMODAFINIL
     Indication: SLEEP APNOEA SYNDROME
     Dosage: 200 MILLIGRAM DAILY; DOSE FREQUENCY: EVERY MORNING AND LUNCH
     Route: 065
     Dates: start: 2016
  3. CLINDAMYCIN. [Suspect]
     Active Substance: CLINDAMYCIN
     Dosage: FOR 14 DAYS
     Route: 065
  4. LASIX [Concomitant]
     Active Substance: FUROSEMIDE
  5. METANX [Concomitant]
     Active Substance: LEVOMEFOLATE CALCIUM\METHYLCOBALAMIN\PYRIDOXAL PHOSPHATE ANHYDROUS

REACTIONS (7)
  - Gingival disorder [Recovered/Resolved]
  - Tooth abscess [Not Recovered/Not Resolved]
  - Nausea [Unknown]
  - Tooth resorption [Not Recovered/Not Resolved]
  - Jaw disorder [Not Recovered/Not Resolved]
  - Gingival discolouration [Recovered/Resolved]
  - Noninfective gingivitis [Recovered/Resolved]

NARRATIVE: CASE EVENT DATE: 2020
